FAERS Safety Report 7787627-4 (Version None)
Quarter: 2011Q3

REPORT INFORMATION
  Report Type: 
  Country: None (occurrence: None)
  Receive Date: 20110929
  Receipt Date: 20110928
  Transmission Date: 20111222
  Serious: Yes (Hospitalization)
  Sender: FDA-Public Use
  Company Number: JP-ABBOTT-11P-087-0718276-00

PATIENT
  Sex: Female
  Weight: 41 kg

DRUGS (14)
  1. BUCILLAMINE [Concomitant]
     Indication: RHEUMATOID ARTHRITIS
     Dosage: 200 MILLIGRAMS DAILY
     Route: 048
     Dates: start: 20090930
  2. MECOBALAMIN [Concomitant]
     Indication: RHEUMATOID ARTHRITIS
     Route: 048
     Dates: start: 20090930
  3. PREDNISOLONE [Concomitant]
     Indication: RHEUMATOID ARTHRITIS
     Dosage: 2.75 MILLIGRAMS DAILY
     Route: 048
     Dates: start: 20090930, end: 20110316
  4. MINODRONIC ACID HYDRATE [Concomitant]
     Indication: OSTEOPOROSIS
     Dosage: 1 MILLIGRAM DAILY
     Route: 048
     Dates: start: 20100831
  5. METHOTREXATE [Concomitant]
     Indication: RHEUMATOID ARTHRITIS
     Route: 048
     Dates: start: 20090930
  6. ZALTOPROFEN [Concomitant]
     Indication: RHEUMATOID ARTHRITIS
     Route: 048
     Dates: start: 20090930, end: 20110316
  7. LORNOXICAM [Concomitant]
     Indication: RHEUMATOID ARTHRITIS
     Route: 048
     Dates: start: 20090930
  8. FOLIC ACID [Concomitant]
     Indication: ADVERSE EVENT
  9. MIZORIBINE [Concomitant]
     Indication: RHEUMATOID ARTHRITIS
     Dosage: 100 MILLIGRAMS DAILY
     Route: 048
     Dates: start: 20090930
  10. HUMIRA [Suspect]
     Indication: RHEUMATOID ARTHRITIS
     Route: 058
     Dates: start: 20091111, end: 20110301
  11. AMLODIPINE BESYLATE [Concomitant]
     Indication: HYPERTENSION
     Route: 048
  12. TEPRENONE [Concomitant]
     Indication: PROPHYLAXIS AGAINST GASTROINTESTINAL ULCER
     Route: 048
     Dates: start: 20090930
  13. FOLIC ACID [Concomitant]
     Indication: PROPHYLAXIS
     Route: 048
     Dates: start: 20091002
  14. ISONIAZID [Concomitant]
     Indication: ANTIBIOTIC PROPHYLAXIS
     Route: 048
     Dates: start: 20091021, end: 20110316

REACTIONS (2)
  - CEREBRAL INFARCTION [None]
  - HERPES ZOSTER [None]
